FAERS Safety Report 25770960 (Version 1)
Quarter: 2025Q3

REPORT INFORMATION
  Report Type: Spontaneous
  Country: JP (occurrence: JP)
  Receive Date: 20250908
  Receipt Date: 20250908
  Transmission Date: 20251021
  Serious: Yes (Death, Other)
  Sender: ASTELLAS
  Company Number: JP-ASTELLAS-2025-AER-048644

PATIENT
  Age: 26 Year
  Sex: Female

DRUGS (12)
  1. GILTERITINIB [Suspect]
     Active Substance: GILTERITINIB
     Indication: Acute myeloid leukaemia recurrent
     Route: 065
  2. GILTERITINIB [Suspect]
     Active Substance: GILTERITINIB
     Route: 065
  3. GILTERITINIB [Suspect]
     Active Substance: GILTERITINIB
     Route: 065
  4. GILTERITINIB [Suspect]
     Active Substance: GILTERITINIB
     Route: 065
  5. CYTARABINE [Concomitant]
     Active Substance: CYTARABINE
     Indication: Acute myeloid leukaemia
     Route: 065
  6. CYTARABINE [Concomitant]
     Active Substance: CYTARABINE
     Indication: Acute myeloid leukaemia recurrent
     Route: 065
  7. CYTARABINE [Concomitant]
     Active Substance: CYTARABINE
     Route: 065
  8. CYTARABINE [Concomitant]
     Active Substance: CYTARABINE
     Route: 065
  9. CYTARABINE [Concomitant]
     Active Substance: CYTARABINE
     Route: 065
  10. ACLARUBICIN [Concomitant]
     Active Substance: ACLARUBICIN
     Indication: Acute myeloid leukaemia recurrent
     Route: 065
  11. AMPHOTERICIN B [Concomitant]
     Active Substance: AMPHOTERICIN B
     Indication: Product used for unknown indication
     Route: 065
  12. VORICONAZOLE [Concomitant]
     Active Substance: VORICONAZOLE
     Indication: Product used for unknown indication
     Route: 065

REACTIONS (2)
  - Death [Fatal]
  - Liver disorder [Unknown]
